FAERS Safety Report 8782032 (Version 2)
Quarter: 2012Q4

REPORT INFORMATION
  Report Type: 
  Country: US (occurrence: US)
  Receive Date: 20120913
  Receipt Date: 20121226
  Transmission Date: 20130627
  Serious: Yes (Other)
  Sender: FDA-Public Use
  Company Number: US-BAYER-2012-094582

PATIENT
  Age: 33 Year
  Sex: Female
  Weight: 61.22 kg

DRUGS (5)
  1. YAZ [Suspect]
     Indication: CONTRACEPTION
     Dosage: UNK
     Dates: start: 200706
  2. YASMIN [Suspect]
     Dosage: UNK
     Dates: start: 2007
  3. OCELLA [Suspect]
     Dosage: UNK
     Dates: start: 2007
  4. LAMOTRIGINE [Concomitant]
     Indication: MOOD SWINGS
     Dosage: UNK
     Dates: start: 2007
  5. ALPRAZOLAM [Concomitant]
     Indication: ANXIETY
     Dosage: UNK
     Dates: start: 2007

REACTIONS (8)
  - Cholelithiasis [None]
  - Gallbladder disorder [None]
  - Gastric disorder [None]
  - Injury [None]
  - Pain [None]
  - Emotional distress [None]
  - Anxiety [None]
  - Psychological trauma [None]
